FAERS Safety Report 12699504 (Version 1)
Quarter: 2016Q3

REPORT INFORMATION
  Report Type: Spontaneous
  Country: US (occurrence: US)
  Receive Date: 20160830
  Receipt Date: 20160830
  Transmission Date: 20161109
  Serious: No
  Sender: FDA-Public Use
  Company Number: US-SUPERNUS PHARMACEUTICALS, INC.-2016SUP00132

PATIENT
  Age: 58 Year
  Sex: Female
  Weight: 68.93 kg

DRUGS (8)
  1. ZYRTEC [Concomitant]
     Active Substance: CETIRIZINE HYDROCHLORIDE
  2. LIBRAX [Concomitant]
     Active Substance: CHLORDIAZEPOXIDE HYDROCHLORIDE\CLIDINIUM BROMIDE
     Dosage: UNK, 3X/DAY
  3. TROKENDI XR [Suspect]
     Active Substance: TOPIRAMATE
     Dosage: 50 MG, 1X/DAY
     Dates: start: 20160712, end: 20160712
  4. GABAPENTIN. [Concomitant]
     Active Substance: GABAPENTIN
     Dosage: 1 DOSAGE UNITS, 1X/DAY
     Dates: start: 20160607, end: 20160711
  5. RHINOCORT [Concomitant]
     Active Substance: BUDESONIDE
  6. PREMPRO [Concomitant]
     Active Substance: ESTROGENS, CONJUGATED\MEDROXYPROGESTERONE ACETATE
     Dosage: 0.625/2.5 1X DAILY
  7. IMODIUM [Concomitant]
     Active Substance: LOPERAMIDE HYDROCHLORIDE
     Indication: INFLAMMATORY BOWEL DISEASE
     Dosage: UNK UNK, 2X/DAY
  8. LIBRAX [Concomitant]
     Active Substance: CHLORDIAZEPOXIDE HYDROCHLORIDE\CLIDINIUM BROMIDE
     Indication: INFLAMMATORY BOWEL DISEASE
     Dosage: UNK, 2X/DAY

REACTIONS (13)
  - Off label use [Not Recovered/Not Resolved]
  - Nerve compression [Unknown]
  - Listless [Recovered/Resolved]
  - Ear pain [Not Recovered/Not Resolved]
  - Sinus pain [Not Recovered/Not Resolved]
  - Toothache [Not Recovered/Not Resolved]
  - Restlessness [Recovered/Resolved]
  - Fatigue [Not Recovered/Not Resolved]
  - Psychomotor hyperactivity [Recovered/Resolved]
  - Sinus disorder [Not Recovered/Not Resolved]
  - Carpal tunnel syndrome [Unknown]
  - Insomnia [Unknown]
  - Sensory disturbance [Recovered/Resolved]

NARRATIVE: CASE EVENT DATE: 20160712
